FAERS Safety Report 6079687-6 (Version None)
Quarter: 2009Q1

REPORT INFORMATION
  Report Type: 
  Country: None (occurrence: None)
  Receive Date: 20090217
  Receipt Date: 20090212
  Transmission Date: 20090719
  Serious: Yes (Life-Threatening, Hospitalization, Disabling)
  Sender: FDA-Public Use
  Company Number: US-BRISTOL-MYERS SQUIBB COMPANY-14504864

PATIENT
  Age: 78 Year
  Sex: Female

DRUGS (2)
  1. CETUXIMAB [Suspect]
     Indication: LUNG ADENOCARCINOMA
     Dosage: THERAPY STARTED ON 31OCT2008. LAST PROTOCOL TREATMENT WAS ON 16-JAN-2009. INTERRUPTED 29JAN09.
     Dates: start: 20090129, end: 20090129
  2. TARCEVA [Suspect]
     Indication: LUNG ADENOCARCINOMA
     Dosage: THERAPY STARTED ON 31OCT2008.LAST PROTOCOL TREATMENT DATE 16JAN09
     Dates: start: 20090116, end: 20090116

REACTIONS (3)
  - BLOOD POTASSIUM INCREASED [None]
  - FATIGUE [None]
  - RENAL FAILURE [None]
